FAERS Safety Report 24675519 (Version 1)
Quarter: 2024Q4

REPORT INFORMATION
  Report Type: Report from Study
  Country: CA (occurrence: CA)
  Receive Date: 20241128
  Receipt Date: 20241128
  Transmission Date: 20250115
  Serious: Yes (Other)
  Sender: NOVARTIS
  Company Number: CA-002147023-NVSC2024CA227247

PATIENT
  Age: 48 Year
  Sex: Female

DRUGS (1)
  1. KISQALI [Suspect]
     Active Substance: RIBOCICLIB
     Indication: Breast cancer metastatic
     Dosage: 600 MG, UNKNOWN
     Route: 048
     Dates: start: 20241025, end: 20241114

REACTIONS (4)
  - Pleural effusion [Recovering/Resolving]
  - Vomiting [Recovered/Resolved]
  - Hypophagia [Not Recovered/Not Resolved]
  - Weight decreased [Unknown]
